FAERS Safety Report 12328399 (Version 3)
Quarter: 2016Q2

REPORT INFORMATION
  Report Type: Spontaneous
  Country: CH (occurrence: CH)
  Receive Date: 20160503
  Receipt Date: 20160511
  Transmission Date: 20160815
  Serious: Yes (Hospitalization, Other)
  Sender: FDA-Public Use
  Company Number: CH-PFIZER INC-2016233814

PATIENT
  Age: 52 Year
  Sex: Male
  Weight: 94 kg

DRUGS (15)
  1. MERONEM [Concomitant]
     Active Substance: MEROPENEM
     Dosage: 1 G, 1X/DAY
     Dates: start: 20160406
  2. BRUFEN RETARD [Interacting]
     Active Substance: IBUPROFEN
     Dosage: 800 MG, 2X/DAY (1-0-1)
     Route: 048
     Dates: start: 201602, end: 20160330
  3. CUBICIN [Concomitant]
     Active Substance: DAPTOMYCIN
     Dosage: 500 MG, 1X/DAY
     Route: 042
     Dates: start: 20160401, end: 20160401
  4. TAZOBAC [Suspect]
     Active Substance: PIPERACILLIN SODIUM\TAZOBACTAM SODIUM
     Dosage: 4.5 G, 3X/DAY
     Route: 041
     Dates: start: 20160227, end: 20160323
  5. KINZAL [Interacting]
     Active Substance: TELMISARTAN
     Dosage: 40 MG, 1X/DAY (1-0-0)
     Route: 048
     Dates: start: 2015, end: 20160330
  6. OXYCONTIN [Concomitant]
     Active Substance: OXYCODONE HYDROCHLORIDE
     Dosage: 10 MG, 2X/DAY (1-0-0-1)
  7. DAFALGAN [Concomitant]
     Active Substance: ACETAMINOPHEN
     Dosage: 500 MG, 4X/DAY (1-1-1-1)
  8. PANTOZOL [Suspect]
     Active Substance: PANTOPRAZOLE SODIUM
     Dosage: 40 MG, 1X/DAY (1-0-0)
     Route: 048
     Dates: start: 201602, end: 20160330
  9. CIPROXIN /00697201/ [Suspect]
     Active Substance: CIPROFLOXACIN
     Dosage: 750 MG, 2X/DAY
     Route: 048
     Dates: start: 20160323, end: 20160330
  10. PHYSIOTENS [Concomitant]
     Active Substance: MOXONIDINE
     Dosage: 0.3 MG, 2X/DAY (1-0-1)
     Dates: end: 20160330
  11. TAZOBAC [Suspect]
     Active Substance: PIPERACILLIN SODIUM\TAZOBACTAM SODIUM
     Dosage: 4.5 G, TID
     Route: 041
     Dates: start: 20160330, end: 20160406
  12. METFORMIN [Concomitant]
     Active Substance: METFORMIN HYDROCHLORIDE
     Dosage: 250 MG, 2X/DAY (0.5-0-0.5)
     Dates: start: 201602, end: 20160330
  13. VITAMIN D [Concomitant]
     Active Substance: CHOLECALCIFEROL
     Dosage: 12 GTT, WEEKLY (ON WEDNESDAY)
     Dates: start: 201602
  14. LAXOBERON [Concomitant]
     Active Substance: SODIUM PICOSULFATE
     Dosage: 10 GTT, 1X/DAY (10-0-0)
  15. FRAGMIN [Concomitant]
     Active Substance: DALTEPARIN SODIUM
     Dosage: 2500 IU, 1X/DAY (0-0-0-1)
     Route: 058
     Dates: start: 20160330

REACTIONS (3)
  - Acute kidney injury [Not Recovered/Not Resolved]
  - Drug interaction [Not Recovered/Not Resolved]
  - Tubulointerstitial nephritis [Not Recovered/Not Resolved]

NARRATIVE: CASE EVENT DATE: 20160330
